FAERS Safety Report 9965644 (Version 1)
Quarter: 2014Q1

REPORT INFORMATION
  Report Type: Spontaneous
  Country: US (occurrence: US)
  Receive Date: 20140305
  Receipt Date: 20140305
  Transmission Date: 20141002
  Serious: No
  Sender: FDA-Public Use
  Company Number: US-ABBVIE-13P-163-1125635-00

PATIENT
  Age: 62 Year
  Sex: Female
  Weight: 62.2 kg

DRUGS (17)
  1. HUMIRA [Suspect]
     Indication: CROHN^S DISEASE
     Route: 058
     Dates: start: 20130529, end: 201306
  2. BILBERRY [Concomitant]
     Indication: VITAMIN SUPPLEMENTATION
  3. CO Q 10 [Concomitant]
     Indication: VITAMIN SUPPLEMENTATION
  4. ECHINACEA [Concomitant]
     Indication: VITAMIN SUPPLEMENTATION
  5. EFFEXOR XR [Concomitant]
     Indication: ANXIETY
  6. JANUMET [Concomitant]
     Indication: PRODUCT USED FOR UNKNOWN INDICATION
  7. LIPITOR [Concomitant]
     Indication: HYPERLIPIDAEMIA
  8. MULTIVITAMIN [Concomitant]
     Indication: VITAMIN SUPPLEMENTATION
  9. PREMPRO [Concomitant]
     Indication: HORMONE REPLACEMENT THERAPY
  10. PROTONIX [Concomitant]
     Indication: GASTROOESOPHAGEAL REFLUX DISEASE
  11. SUPER B COMPLEX [Concomitant]
  12. VITAMIN A [Concomitant]
  13. VITAMIN C [Concomitant]
  14. VITAMIN D [Concomitant]
  15. VITAMIN E [Concomitant]
  16. ZIAC [Concomitant]
     Indication: HYPERTENSION
  17. TRILIPIX [Concomitant]
     Indication: HYPERLIPIDAEMIA

REACTIONS (4)
  - Skin lesion [Unknown]
  - Rash [Unknown]
  - Acne [Not Recovered/Not Resolved]
  - Staphylococcal infection [Not Recovered/Not Resolved]
